FAERS Safety Report 24978865 (Version 1)
Quarter: 2025Q1

REPORT INFORMATION
  Report Type: Other
  Country: CA (occurrence: CA)
  Receive Date: 20250218
  Receipt Date: 20250218
  Transmission Date: 20250409
  Serious: Yes (Life-Threatening, Disabling, Other)
  Sender: APOTEX
  Company Number: CA-APOTEX-2025AP002127

PATIENT
  Age: 40 Year
  Sex: Female
  Weight: 56.689 kg

DRUGS (1)
  1. ATOMOXETINE [Suspect]
     Active Substance: ATOMOXETINE
     Indication: Disturbance in attention
     Dosage: 5 MILLIGRAM, QD
     Route: 048

REACTIONS (9)
  - Tunnel vision [Recovered/Resolved]
  - Asthenopia [Recovered/Resolved]
  - Glare [Recovered/Resolved]
  - Mydriasis [Recovered/Resolved]
  - Ocular discomfort [Recovered/Resolved]
  - Photophobia [Recovered/Resolved]
  - Strabismus [Recovered/Resolved]
  - Visual brightness [Recovered/Resolved]
  - Visual impairment [Recovered/Resolved]
